FAERS Safety Report 8948116 (Version 1)
Quarter: 2012Q4

REPORT INFORMATION
  Report Type: Spontaneous
  Country: US (occurrence: None)
  Receive Date: 20121203
  Receipt Date: 20121203
  Transmission Date: 20130627
  Serious: No
  Sender: FDA-Public Use
  Company Number: None

PATIENT

DRUGS (2)
  1. SUBOXONE [Suspect]
     Indication: UNEVALUABLE EVENT
     Route: 060
  2. SUBOXONE [Suspect]
     Indication: DIZZY
     Route: 060

REACTIONS (4)
  - Barrett^s oesophagus [None]
  - Gastrooesophageal reflux disease [None]
  - Dizziness [None]
  - Product quality issue [None]
